FAERS Safety Report 6384923-2 (Version None)
Quarter: 2009Q4

REPORT INFORMATION
  Report Type: 
  Country: None (occurrence: None)
  Receive Date: 20091002
  Receipt Date: 20090918
  Transmission Date: 20100525
  Serious: No
  Sender: FDA-Public Use
  Company Number: A0791218A

PATIENT
  Age: 52 Year
  Sex: Male

DRUGS (6)
  1. REQUIP XL [Suspect]
     Indication: PARKINSON'S DISEASE
     Dosage: 8MG PER DAY
     Route: 048
     Dates: start: 20081201
  2. STALEVO 100 [Concomitant]
     Dosage: 150MG SIX TIMES PER DAY
     Route: 048
     Dates: start: 20081001
  3. AZILECT [Concomitant]
     Dosage: 1MG PER DAY
     Route: 048
     Dates: start: 20090515
  4. LISINOPRIL [Concomitant]
     Dosage: 10MG TWICE PER DAY
     Route: 048
     Dates: start: 20021201
  5. BUPROPION HCL [Concomitant]
     Dosage: 150MG PER DAY
     Route: 048
     Dates: start: 20081226
  6. CELEBREX [Concomitant]
     Dosage: 200MG PER DAY
     Route: 048
     Dates: start: 20061004

REACTIONS (5)
  - DRUG INEFFECTIVE [None]
  - GAIT DISTURBANCE [None]
  - MOVEMENT DISORDER [None]
  - PARKINSONIAN GAIT [None]
  - PRODUCT QUALITY ISSUE [None]
